FAERS Safety Report 16132270 (Version 4)
Quarter: 2019Q2

REPORT INFORMATION
  Report Type: Report from Study
  Country: FR (occurrence: FR)
  Receive Date: 20190329
  Receipt Date: 20190620
  Transmission Date: 20190711
  Serious: Yes (Death, Other)
  Sender: FDA-Public Use
  Company Number: FR-BRISTOL-MYERS SQUIBB COMPANY-BMS-2018-124693

PATIENT
  Age: 49 Year
  Sex: Male

DRUGS (2)
  1. EVEROLIMUS. [Concomitant]
     Active Substance: EVEROLIMUS
     Indication: AUTOIMMUNE MYOSITIS
     Dosage: UNK
     Route: 065
  2. NIVOLUMAB [Suspect]
     Active Substance: NIVOLUMAB
     Indication: LUNG NEOPLASM MALIGNANT
     Dosage: 240 MILLIGRAM, Q2WK
     Route: 042
     Dates: start: 20171011, end: 20180110

REACTIONS (4)
  - Malignant neoplasm progression [Unknown]
  - Pneumonia aspiration [Fatal]
  - Vomiting [Unknown]
  - Respiratory distress [Fatal]

NARRATIVE: CASE EVENT DATE: 20190310
